FAERS Safety Report 5398023-1 (Version None)
Quarter: 2007Q3

REPORT INFORMATION
  Report Type: 
  Country: None (occurrence: None)
  Receive Date: 20070726
  Receipt Date: 20070713
  Transmission Date: 20080115
  Serious: Yes (Hospitalization)
  Sender: FDA-Public Use
  Company Number: AR-ELI_LILLY_AND_COMPANY-AR200706000659

PATIENT
  Age: 69 Year
  Sex: Male
  Weight: 98.6 kg

DRUGS (13)
  1. LISPRO 25LIS75NPL [Suspect]
     Indication: TYPE 2 DIABETES MELLITUS
     Dates: start: 20070605
  2. LISPRO 25LIS75NPL [Suspect]
     Dosage: 30 IU, UNK
     Route: 058
     Dates: start: 20070522, end: 20070530
  3. LISPRO 25LIS75NPL [Suspect]
     Dosage: 14 IU, UNK
     Route: 058
     Dates: start: 20070522, end: 20070530
  4. FUROSEMIDE [Concomitant]
     Indication: HYPERTENSION
     Dosage: 0.5 D/F, UNK
     Route: 048
     Dates: start: 20060708
  5. THEOPHYLLINE [Concomitant]
     Indication: ASTHMA
     Dosage: 200 MG, UNK
     Route: 048
     Dates: start: 20060101
  6. VENTOLIN /SCH/ [Concomitant]
     Indication: ASTHMA
     Dosage: UNK, UNK
     Dates: start: 19530101
  7. ATROVENT [Concomitant]
     Indication: ASTHMA
     Dosage: 20 , UNK
     Dates: start: 19930101
  8. ENALAPRIL MALEATE [Concomitant]
     Indication: HYPERTENSION
     Dosage: 5 MG, UNK
     Route: 048
     Dates: start: 20060101
  9. SERETIDE [Concomitant]
     Indication: ASTHMA
     Dosage: UNK, UNK
     Dates: start: 20050101
  10. GABAPENTIN [Concomitant]
     Indication: NEUROPATHY
     Dosage: 100 MG, UNK
     Dates: start: 20050101
  11. BROMAZEPAM [Concomitant]
     Indication: INSOMNIA
     Dosage: 3 MG, UNK
     Dates: start: 20030101
  12. GLYBURIDE [Concomitant]
     Indication: DIABETES MELLITUS
     Dosage: UNK, UNK
     Dates: start: 19750101
  13. METFORMIN HCL [Concomitant]
     Indication: DIABETES MELLITUS
     Dosage: 1500 MG, UNK
     Dates: start: 20060315

REACTIONS (1)
  - PNEUMONIA [None]
